FAERS Safety Report 8824514 (Version 5)
Quarter: 2012Q4

REPORT INFORMATION
  Report Type: 
  Country: US (occurrence: US)
  Receive Date: 20121004
  Receipt Date: 20121123
  Transmission Date: 20130627
  Serious: Yes (Death)
  Sender: FDA-Public Use
  Company Number: US-PFIZER INC-2012218747

PATIENT
  Age: 70 Year
  Sex: Male
  Weight: 112 kg

DRUGS (2)
  1. SUTENT [Suspect]
     Indication: THYROID CANCER
     Dosage: 37.5 mg, 1x/day (taking 25mg every AM and 12.5mg every PM)
     Route: 048
     Dates: start: 20120902, end: 20121008
  2. LORTAB [Concomitant]
     Indication: PAIN
     Dosage: 10/325 mg every 4-6 hour, prn
     Route: 048

REACTIONS (15)
  - Death [Fatal]
  - Off label use [Unknown]
  - Mouth haemorrhage [Unknown]
  - Glossodynia [Unknown]
  - Productive cough [Unknown]
  - Mucosal inflammation [Unknown]
  - Asthenia [Unknown]
  - Haematuria [Unknown]
  - Cystitis noninfective [Unknown]
  - Dehydration [Unknown]
  - Odynophagia [Unknown]
  - Proteinuria [Unknown]
  - Mucosal dryness [Unknown]
  - Rales [Unknown]
  - Rhonchi [Unknown]
